FAERS Safety Report 15061788 (Version 11)
Quarter: 2022Q3

REPORT INFORMATION
  Report Type: Report from Study
  Country: JP (occurrence: None)
  Receive Date: 20180625
  Receipt Date: 20220708
  Transmission Date: 20221027
  Serious: Yes (Hospitalization)
  Sender: FDA-Public Use
  Company Number: JP-ROCHE-2125486

PATIENT
  Age: 48 Year
  Sex: Female
  Weight: 45 kg

DRUGS (147)
  1. ATEZOLIZUMAB [Suspect]
     Active Substance: ATEZOLIZUMAB
     Indication: Ovarian cancer
     Dosage: DATE OF MOST RECENT DOSE OF ATEZOLIZUMAB/PLACEBO PRIOR TO SAE (ABDOMINAL PAIN) ONSET 03/APR/2018?ON
     Route: 042
     Dates: start: 20180220
  2. BEVACIZUMAB [Suspect]
     Active Substance: BEVACIZUMAB
     Indication: Ovarian cancer
     Dosage: DATE OF MOST RECENT DOSE 742 MG OF BEVACEZUMAB PRIOR TO SAE (ABDOMINAL PAIN) ONSET 13/MAR/2018?DATE
     Route: 042
     Dates: start: 20180220
  3. CARBOPLATIN [Suspect]
     Active Substance: CARBOPLATIN
     Indication: Ovarian cancer
     Dosage: AREA UNDER THE CURVE (AUC) OF 6 MILLIGRAMS PER MILLILITER*MINUTE (MG/ML*MIN) ON DAY 1 OF EACH 21-DAY
     Route: 042
     Dates: start: 20180220
  4. PACLITAXEL [Suspect]
     Active Substance: PACLITAXEL
     Indication: Ovarian cancer
     Dosage: DATE OF MOST RECENT DOSE 259 MG OF PACLITAXEL PRIOR TO SAE (ABDOMINAL PAIN) ONSET 03/APR/2018?ON 22/
     Route: 042
     Dates: start: 20180220
  5. CRESTOR [Concomitant]
     Active Substance: ROSUVASTATIN CALCIUM
     Indication: Hypercholesterolaemia
     Dates: start: 201709, end: 20180425
  6. MAGNESIUM OXIDE [Concomitant]
     Active Substance: MAGNESIUM OXIDE
     Dates: start: 201802, end: 20180422
  7. MAGNESIUM OXIDE [Concomitant]
     Active Substance: MAGNESIUM OXIDE
     Dates: start: 20180507, end: 20180516
  8. MAGNESIUM OXIDE [Concomitant]
     Active Substance: MAGNESIUM OXIDE
     Dates: start: 20180517, end: 20180619
  9. MAGNESIUM OXIDE [Concomitant]
     Active Substance: MAGNESIUM OXIDE
     Dates: start: 20180704
  10. MAGNESIUM OXIDE [Concomitant]
     Active Substance: MAGNESIUM OXIDE
     Dates: start: 20181029
  11. TALION [Concomitant]
     Indication: Seasonal allergy
     Dates: start: 20180219
  12. OXYCONTIN [Concomitant]
     Active Substance: OXYCODONE HYDROCHLORIDE
     Indication: Tumour pain
     Dates: start: 20180223, end: 20180424
  13. OXYCONTIN [Concomitant]
     Active Substance: OXYCODONE HYDROCHLORIDE
     Indication: Procedural pain
     Dates: start: 20180507, end: 20180516
  14. OXYCONTIN [Concomitant]
     Active Substance: OXYCODONE HYDROCHLORIDE
     Dates: start: 20180516, end: 20180523
  15. OXYCONTIN [Concomitant]
     Active Substance: OXYCODONE HYDROCHLORIDE
     Dates: start: 20180523, end: 20180619
  16. OXYCONTIN [Concomitant]
     Active Substance: OXYCODONE HYDROCHLORIDE
     Dates: start: 20180711
  17. OXYCODONE HYDROCHLORIDE [Concomitant]
     Active Substance: OXYCODONE HYDROCHLORIDE
     Indication: Tumour pain
     Dates: start: 20180223, end: 20180424
  18. OXYCODONE HYDROCHLORIDE [Concomitant]
     Active Substance: OXYCODONE HYDROCHLORIDE
     Indication: Arthralgia
     Dates: start: 20180507, end: 20180516
  19. OXYCODONE HYDROCHLORIDE [Concomitant]
     Active Substance: OXYCODONE HYDROCHLORIDE
     Indication: Procedural pain
     Dates: start: 20180523, end: 20180619
  20. OXYCODONE HYDROCHLORIDE [Concomitant]
     Active Substance: OXYCODONE HYDROCHLORIDE
     Dates: start: 20190620
  21. SYMPROIC [Concomitant]
     Active Substance: NALDEMEDINE
     Indication: Constipation
     Dates: start: 20180223, end: 20180424
  22. SYMPROIC [Concomitant]
     Active Substance: NALDEMEDINE
     Dates: start: 20180507, end: 20180516
  23. SYMPROIC [Concomitant]
     Active Substance: NALDEMEDINE
     Dates: start: 20180523, end: 20180619
  24. SYMPROIC [Concomitant]
     Active Substance: NALDEMEDINE
     Dates: start: 20180705
  25. SYMPROIC [Concomitant]
     Active Substance: NALDEMEDINE
     Dates: start: 20180920
  26. GLYCOSAMINOGLYCANS [Concomitant]
     Active Substance: GLYCOSAMINOGLYCANS
     Indication: Dry skin
     Dates: start: 20180312
  27. GLYCOSAMINOGLYCANS [Concomitant]
     Active Substance: GLYCOSAMINOGLYCANS
     Dates: start: 20180312
  28. GLYCOSAMINOGLYCANS [Concomitant]
     Active Substance: GLYCOSAMINOGLYCANS
     Dates: start: 20190107
  29. LYRICA [Concomitant]
     Active Substance: PREGABALIN
     Indication: Peripheral sensory neuropathy
     Dates: start: 20180316, end: 20180424
  30. LYRICA [Concomitant]
     Active Substance: PREGABALIN
     Dates: start: 20180509, end: 20180516
  31. LYRICA [Concomitant]
     Active Substance: PREGABALIN
     Dates: start: 20180517, end: 20180619
  32. LYRICA [Concomitant]
     Active Substance: PREGABALIN
     Dates: start: 20180717
  33. HYALURONATE SODIUM [Concomitant]
     Active Substance: HYALURONATE SODIUM
     Dates: start: 20180422
  34. FLUTICASONE FUROATE [Concomitant]
     Active Substance: FLUTICASONE FUROATE
     Indication: Seasonal allergy
     Route: 061
     Dates: start: 20180328, end: 20180422
  35. NORTRIPTYLINE HYDROCHLORIDE [Concomitant]
     Active Substance: NORTRIPTYLINE HYDROCHLORIDE
     Indication: Peripheral sensory neuropathy
     Dates: start: 20180404, end: 20180424
  36. NORTRIPTYLINE HYDROCHLORIDE [Concomitant]
     Active Substance: NORTRIPTYLINE HYDROCHLORIDE
     Dates: start: 20180711
  37. NORTRIPTYLINE HYDROCHLORIDE [Concomitant]
     Active Substance: NORTRIPTYLINE HYDROCHLORIDE
     Dates: start: 20180922
  38. ZYPREXA [Concomitant]
     Active Substance: OLANZAPINE
     Indication: Nausea
     Dates: start: 20180405, end: 20180424
  39. ZYPREXA [Concomitant]
     Active Substance: OLANZAPINE
     Dates: start: 20180521, end: 20180604
  40. FENTANYL [Concomitant]
     Active Substance: FENTANYL
     Dates: start: 20180425, end: 20180426
  41. FENTANYL [Concomitant]
     Active Substance: FENTANYL
     Dates: start: 20180907, end: 20180907
  42. REMIFENTANIL [Concomitant]
     Active Substance: REMIFENTANIL
     Route: 042
     Dates: start: 20180425, end: 20180425
  43. REMIFENTANIL [Concomitant]
     Active Substance: REMIFENTANIL
     Route: 042
     Dates: start: 20180907, end: 20180907
  44. PROPOFOL [Concomitant]
     Active Substance: PROPOFOL
     Dates: start: 20180425, end: 20180425
  45. PROPOFOL [Concomitant]
     Active Substance: PROPOFOL
     Dates: start: 20180907, end: 20180907
  46. ACETAMINOPHEN [Concomitant]
     Active Substance: ACETAMINOPHEN
     Indication: Pain
     Route: 042
     Dates: start: 20180425, end: 20180504
  47. ACETAMINOPHEN [Concomitant]
     Active Substance: ACETAMINOPHEN
     Dates: start: 20180907, end: 20180912
  48. ROCURONIUM BROMIDE [Concomitant]
     Active Substance: ROCURONIUM BROMIDE
     Dates: start: 20180425, end: 20180425
  49. ROCURONIUM BROMIDE [Concomitant]
     Active Substance: ROCURONIUM BROMIDE
     Dates: start: 20180907, end: 20180907
  50. XYLOCAINE [Concomitant]
     Active Substance: LIDOCAINE HYDROCHLORIDE
     Indication: General anaesthesia
     Dates: start: 20180425, end: 20180426
  51. XYLOCAINE [Concomitant]
     Active Substance: LIDOCAINE HYDROCHLORIDE
     Indication: Pain
     Dates: start: 20180612, end: 20180612
  52. SUPRANE [Concomitant]
     Active Substance: DESFLURANE
     Indication: General anaesthesia
     Dates: start: 20180425, end: 20180425
  53. SUPRANE [Concomitant]
     Active Substance: DESFLURANE
     Dates: start: 20180907
  54. DECADRON (DEXAMETHASONE SODIUM PHOSPHATE) [Concomitant]
     Active Substance: DEXAMETHASONE SODIUM PHOSPHATE
     Indication: Prophylaxis of nausea and vomiting
     Route: 042
     Dates: start: 20180425, end: 20180425
  55. DECADRON (DEXAMETHASONE SODIUM PHOSPHATE) [Concomitant]
     Active Substance: DEXAMETHASONE SODIUM PHOSPHATE
     Route: 042
     Dates: start: 20180522, end: 20180522
  56. DECADRON (DEXAMETHASONE SODIUM PHOSPHATE) [Concomitant]
     Active Substance: DEXAMETHASONE SODIUM PHOSPHATE
     Route: 042
     Dates: start: 20180612, end: 20180612
  57. DROPERIDOL [Concomitant]
     Active Substance: DROPERIDOL
     Indication: General anaesthesia
     Dates: start: 20180425, end: 20180425
  58. NEOSYNESIN KOWA [Concomitant]
     Indication: General anaesthesia
     Dates: start: 20180425, end: 20180425
  59. NEOSYNESIN KOWA [Concomitant]
     Dates: start: 20180907, end: 20180907
  60. BICANATE [Concomitant]
     Active Substance: CALCIUM CHLORIDE\MAGNESIUM CHLORIDE\POTASSIUM CHLORIDE\SODIUM BICARBONATE\SODIUM CHLORIDE\TRISODIUM
     Dates: start: 20180425, end: 20180425
  61. BICANATE [Concomitant]
     Active Substance: CALCIUM CHLORIDE\MAGNESIUM CHLORIDE\POTASSIUM CHLORIDE\SODIUM BICARBONATE\SODIUM CHLORIDE\TRISODIUM
     Dates: start: 20180907, end: 20180907
  62. CALCIUM GLUCONATE\DEXTROSE\MAGNESIUM CHLORIDE\POTASSIUM CHLORIDE\SODIU [Concomitant]
     Active Substance: CALCIUM GLUCONATE\DEXTROSE\MAGNESIUM CHLORIDE\POTASSIUM CHLORIDE\SODIUM ACETATE\SODIUM CHLORIDE\TRIS
     Dates: start: 20180425, end: 20180428
  63. CALCIUM GLUCONATE\DEXTROSE\MAGNESIUM CHLORIDE\POTASSIUM CHLORIDE\SODIU [Concomitant]
     Active Substance: CALCIUM GLUCONATE\DEXTROSE\MAGNESIUM CHLORIDE\POTASSIUM CHLORIDE\SODIUM ACETATE\SODIUM CHLORIDE\TRIS
     Dates: start: 20180523, end: 20180523
  64. CALCIUM GLUCONATE\DEXTROSE\MAGNESIUM CHLORIDE\POTASSIUM CHLORIDE\SODIU [Concomitant]
     Active Substance: CALCIUM GLUCONATE\DEXTROSE\MAGNESIUM CHLORIDE\POTASSIUM CHLORIDE\SODIUM ACETATE\SODIUM CHLORIDE\TRIS
     Dates: start: 20180613, end: 20180613
  65. CALCIUM GLUCONATE\DEXTROSE\MAGNESIUM CHLORIDE\POTASSIUM CHLORIDE\SODIU [Concomitant]
     Active Substance: CALCIUM GLUCONATE\DEXTROSE\MAGNESIUM CHLORIDE\POTASSIUM CHLORIDE\SODIUM ACETATE\SODIUM CHLORIDE\TRIS
     Dates: start: 20180907, end: 20180912
  66. BRIDION [Concomitant]
     Active Substance: SUGAMMADEX
     Indication: General anaesthesia
     Route: 042
     Dates: start: 20180425, end: 20180425
  67. BRIDION [Concomitant]
     Active Substance: SUGAMMADEX
     Route: 042
     Dates: start: 20180907, end: 20180907
  68. FLUMARIN (JAPAN) [Concomitant]
     Indication: Infection prophylaxis
     Dates: start: 20180425, end: 20180426
  69. LEVOBUPIVACAINE HYDROCHLORIDE [Concomitant]
     Active Substance: LEVOBUPIVACAINE HYDROCHLORIDE
     Dates: start: 20180425, end: 20180427
  70. LEVOBUPIVACAINE HYDROCHLORIDE [Concomitant]
     Active Substance: LEVOBUPIVACAINE HYDROCHLORIDE
     Dates: start: 20180907, end: 20180907
  71. VOLUVEN [Concomitant]
     Active Substance: HYDROXYETHYL STARCH 130/0.4
     Route: 042
     Dates: start: 20180425, end: 20180425
  72. VOLUVEN [Concomitant]
     Active Substance: HYDROXYETHYL STARCH 130/0.4
     Route: 042
     Dates: start: 20180907, end: 20180907
  73. EPHEDRINE HYDROCHLORIDE [Concomitant]
     Active Substance: EPHEDRINE HYDROCHLORIDE
     Indication: General anaesthesia
     Dates: start: 20180425, end: 20180425
  74. OXYGEN [Concomitant]
     Active Substance: OXYGEN
     Indication: General anaesthesia
     Dosage: LIQUEFIED OXYGEN
     Dates: start: 20180425, end: 20180430
  75. OXYGEN [Concomitant]
     Active Substance: OXYGEN
     Dates: start: 20180907, end: 20180907
  76. SENNOSIDES [Concomitant]
     Active Substance: SENNOSIDES
     Dates: start: 20180423, end: 20180423
  77. GLYCERIN [Concomitant]
     Active Substance: GLYCERIN
     Dosage: KENEI G ENEMA 50%
     Dates: start: 20180425, end: 20180425
  78. SOLACET D [Concomitant]
     Dates: start: 20180425, end: 20180504
  79. SOLACET D [Concomitant]
     Dates: start: 20180506, end: 20180507
  80. SOLACET D [Concomitant]
     Dates: start: 20180522, end: 20180522
  81. SOLACET D [Concomitant]
     Dates: start: 20180612, end: 20180612
  82. FESIN [Concomitant]
     Indication: Procedural haemorrhage
     Dates: start: 20180426, end: 20180507
  83. FLURBIPROFEN AXETIL [Concomitant]
     Active Substance: FLURBIPROFEN AXETIL
     Indication: Pain
     Route: 042
     Dates: start: 20180426, end: 20180426
  84. KETALAR [Concomitant]
     Active Substance: KETAMINE HYDROCHLORIDE
     Indication: Pain
     Route: 042
     Dates: start: 20180426, end: 20180502
  85. OXYCODONE [Concomitant]
     Active Substance: OXYCODONE
     Indication: Pain
     Dates: start: 20180426, end: 20180506
  86. OXYCODONE [Concomitant]
     Active Substance: OXYCODONE
     Indication: Procedural pain
     Dates: start: 20180516, end: 20180523
  87. OXYCODONE [Concomitant]
     Active Substance: OXYCODONE
     Dates: start: 20180619
  88. ENOXAPARIN SODIUM [Concomitant]
     Active Substance: ENOXAPARIN SODIUM
     Indication: Thrombosis prophylaxis
     Dates: start: 20180426, end: 20180501
  89. PRIMPERAN [Concomitant]
     Active Substance: METOCLOPRAMIDE HYDROCHLORIDE
     Indication: Nausea
     Dates: start: 20180427, end: 20180427
  90. PRIMPERAN [Concomitant]
     Active Substance: METOCLOPRAMIDE HYDROCHLORIDE
     Dates: start: 20180619, end: 20180620
  91. PRIMPERAN [Concomitant]
     Active Substance: METOCLOPRAMIDE HYDROCHLORIDE
     Dates: start: 20180614, end: 20180614
  92. HERBALS [Concomitant]
     Active Substance: HERBALS
     Indication: Abdominal distension
     Dates: start: 20180427, end: 20180516
  93. HERBALS [Concomitant]
     Active Substance: HERBALS
     Dates: start: 20180507, end: 20180516
  94. HERBALS [Concomitant]
     Active Substance: HERBALS
     Dates: start: 20180517, end: 20180619
  95. HERBALS [Concomitant]
     Active Substance: HERBALS
     Dates: start: 20180704
  96. GASCON (JAPAN) [Concomitant]
     Indication: Abdominal distension
     Dates: start: 20180427, end: 20180516
  97. GASCON (JAPAN) [Concomitant]
     Dates: start: 20180507, end: 20180516
  98. GASCON (JAPAN) [Concomitant]
     Dates: start: 20180517, end: 20180619
  99. ALLEGRA [Concomitant]
     Active Substance: FEXOFENADINE HYDROCHLORIDE
     Indication: Rash maculo-papular
     Dates: start: 20180413, end: 20180415
  100. DEXAMETHASONE DIPROPIONATE [Concomitant]
     Active Substance: DEXAMETHASONE DIPROPIONATE
     Indication: Rash maculo-papular
     Dosage: METHADERM CREAM 0.1%
     Route: 061
     Dates: start: 20180413, end: 20180422
  101. BETAMETHASONE DIPROPIONATE [Concomitant]
     Active Substance: BETAMETHASONE DIPROPIONATE
     Indication: Rash maculo-papular
     Dosage: ANTEBATE LOTION 0.05%
     Route: 061
     Dates: start: 20180413, end: 20180422
  102. BEPOTASTINE BESYLATE [Concomitant]
     Active Substance: BEPOTASTINE BESYLATE
     Indication: Seasonal allergy
     Dates: start: 20180416, end: 20180424
  103. BEPOTASTINE BESYLATE [Concomitant]
     Active Substance: BEPOTASTINE BESYLATE
     Dates: start: 20180507, end: 20180516
  104. BEPOTASTINE BESYLATE [Concomitant]
     Active Substance: BEPOTASTINE BESYLATE
     Dates: start: 20180517, end: 20180619
  105. BEPOTASTINE BESYLATE [Concomitant]
     Active Substance: BEPOTASTINE BESYLATE
     Dates: start: 20180711
  106. ROSUVASTATIN CALCIUM [Concomitant]
     Active Substance: ROSUVASTATIN CALCIUM
     Indication: Hypercholesterolaemia
     Dates: start: 20180507, end: 20180516
  107. ROSUVASTATIN CALCIUM [Concomitant]
     Active Substance: ROSUVASTATIN CALCIUM
     Dates: start: 20180517, end: 20180619
  108. ROSUVASTATIN CALCIUM [Concomitant]
     Active Substance: ROSUVASTATIN CALCIUM
     Dates: start: 20180711
  109. ROSUVASTATIN CALCIUM [Concomitant]
     Active Substance: ROSUVASTATIN CALCIUM
     Dates: start: 20180922
  110. EMEND [Concomitant]
     Active Substance: APREPITANT
     Dates: start: 20180522, end: 20180523
  111. EMEND [Concomitant]
     Active Substance: APREPITANT
     Dates: start: 20180612, end: 20180613
  112. GASTER [Concomitant]
     Active Substance: FAMOTIDINE
     Dates: start: 20180522, end: 20180522
  113. GASTER [Concomitant]
     Active Substance: FAMOTIDINE
     Dates: start: 20180612, end: 20180612
  114. ALOXI [Concomitant]
     Active Substance: PALONOSETRON HYDROCHLORIDE
     Route: 042
     Dates: start: 20180522, end: 20180522
  115. ALOXI [Concomitant]
     Active Substance: PALONOSETRON HYDROCHLORIDE
     Dates: start: 20180612, end: 20180612
  116. CALCIUM CHLORIDE\POTASSIUM CHLORIDE\SODIUM ACETATE\SODIUM CHLORIDE [Concomitant]
     Active Substance: CALCIUM CHLORIDE\POTASSIUM CHLORIDE\SODIUM ACETATE\SODIUM CHLORIDE
     Dates: start: 20180516, end: 20180517
  117. CALCIUM CHLORIDE\POTASSIUM CHLORIDE\SODIUM ACETATE\SODIUM CHLORIDE [Concomitant]
     Active Substance: CALCIUM CHLORIDE\POTASSIUM CHLORIDE\SODIUM ACETATE\SODIUM CHLORIDE
     Dates: start: 20180522, end: 20180522
  118. CALCIUM CHLORIDE\POTASSIUM CHLORIDE\SODIUM ACETATE\SODIUM CHLORIDE [Concomitant]
     Active Substance: CALCIUM CHLORIDE\POTASSIUM CHLORIDE\SODIUM ACETATE\SODIUM CHLORIDE
     Dates: start: 20180523, end: 20180524
  119. CALCIUM CHLORIDE\POTASSIUM CHLORIDE\SODIUM ACETATE\SODIUM CHLORIDE [Concomitant]
     Active Substance: CALCIUM CHLORIDE\POTASSIUM CHLORIDE\SODIUM ACETATE\SODIUM CHLORIDE
     Dates: start: 20180611, end: 20180611
  120. CALCIUM CHLORIDE\POTASSIUM CHLORIDE\SODIUM ACETATE\SODIUM CHLORIDE [Concomitant]
     Active Substance: CALCIUM CHLORIDE\POTASSIUM CHLORIDE\SODIUM ACETATE\SODIUM CHLORIDE
     Dates: start: 20180613, end: 20180614
  121. DIPHENHYDRAMINE [Concomitant]
     Active Substance: DIPHENHYDRAMINE
     Indication: Dry skin
     Dates: start: 201802, end: 20180422
  122. DIPHENHYDRAMINE [Concomitant]
     Active Substance: DIPHENHYDRAMINE
     Dates: start: 20180522, end: 20180522
  123. DIPHENHYDRAMINE [Concomitant]
     Active Substance: DIPHENHYDRAMINE
     Dates: start: 20180612, end: 20180612
  124. HUMAN RED BLOOD CELL [Concomitant]
     Active Substance: HUMAN RED BLOOD CELL
     Dosage: IRRADIATED ERYTHROCYTE
     Dates: start: 20180425, end: 20180425
  125. FILGRASTIM [Concomitant]
     Active Substance: FILGRASTIM
     Indication: Neutrophil count decreased
     Dosage: SYRINGE
     Dates: start: 20180416, end: 20180418
  126. FILGRASTIM [Concomitant]
     Active Substance: FILGRASTIM
     Dates: start: 20180623, end: 20180625
  127. CALONAL [Concomitant]
     Active Substance: ACETAMINOPHEN
     Indication: Pain
     Dates: start: 20180507, end: 20180516
  128. CALONAL [Concomitant]
     Active Substance: ACETAMINOPHEN
     Indication: Procedural pain
     Dates: start: 20180517, end: 20180604
  129. DOMPERIDONE [Concomitant]
     Active Substance: DOMPERIDONE
     Indication: Nausea
     Dates: start: 20180614, end: 20180619
  130. CLOSTRIDIUM BUTYRICUM SPORES STRAIN M-55 [Concomitant]
     Active Substance: CLOSTRIDIUM BUTYRICUM SPORES STRAIN M-55
     Indication: Diarrhoea
     Dates: start: 20180614, end: 20180619
  131. CLOBETASOL [Concomitant]
     Active Substance: CLOBETASOL
     Indication: Infusion site extravasation
     Dosage: 0.05 OTHER
     Route: 061
     Dates: start: 20180612, end: 20180618
  132. BETAMETHASONE DIPROPIONATE [Concomitant]
     Active Substance: BETAMETHASONE DIPROPIONATE
     Indication: Dry skin
     Dosage: 0.05 OTHER
     Route: 061
     Dates: start: 20180613
  133. SOLU-CORTEF [Concomitant]
     Active Substance: HYDROCORTISONE SODIUM SUCCINATE
     Indication: Infusion site extravasation
     Route: 058
     Dates: start: 20180612, end: 20180612
  134. RINDERON [Concomitant]
     Indication: Infusion site extravasation
     Route: 058
     Dates: start: 20180613, end: 20180613
  135. CALCIUM CHLORIDE ANHYDROUS\POTASSIUM CHLORIDE\SODIUM CHLORIDE\SODIUM L [Concomitant]
     Active Substance: CALCIUM CHLORIDE ANHYDROUS\POTASSIUM CHLORIDE\SODIUM CHLORIDE\SODIUM LACTATE
     Dates: start: 20180619
  136. CEFMETAZOLE SODIUM [Concomitant]
     Active Substance: CEFMETAZOLE SODIUM
     Route: 042
     Dates: start: 20180620, end: 20180620
  137. FLUNITRAZEPAM [Concomitant]
     Active Substance: FLUNITRAZEPAM
     Dates: start: 20180621, end: 20180625
  138. HALOPERIDOL [Concomitant]
     Active Substance: HALOPERIDOL
     Dates: start: 20180621, end: 20180628
  139. MAXIPIME [Concomitant]
     Active Substance: CEFEPIME HYDROCHLORIDE
     Dates: start: 20180624, end: 20180630
  140. LOXOPROFEN SODIUM [Concomitant]
     Active Substance: LOXOPROFEN SODIUM
     Indication: Pain
     Dates: start: 20180623, end: 20180623
  141. DORMICUM [Concomitant]
     Dates: start: 20180907, end: 20180907
  142. NOREPINEPHRINE [Concomitant]
     Active Substance: NOREPINEPHRINE
     Dates: start: 20180907, end: 20180907
  143. NICARDIPINE HYDROCHLORIDE [Concomitant]
     Active Substance: NICARDIPINE HYDROCHLORIDE
     Dates: start: 20180907, end: 20180907
  144. ENALAPRIL MALEATE [Concomitant]
     Active Substance: ENALAPRIL MALEATE
     Indication: Hypertension
     Dates: start: 20190528
  145. OXYCODONE [Concomitant]
     Active Substance: OXYCODONE
     Indication: Procedural pain
     Dates: start: 20180920
  146. OXYCODONE [Concomitant]
     Active Substance: OXYCODONE
     Indication: Tumour pain
  147. OXYCODONE [Concomitant]
     Active Substance: OXYCODONE
     Indication: Myalgia

REACTIONS (3)
  - Enterocolitis [Recovered/Resolved]
  - Abdominal pain [Recovered/Resolved]
  - Ileus [Recovered/Resolved]

NARRATIVE: CASE EVENT DATE: 20180515
